FAERS Safety Report 22047122 (Version 1)
Quarter: 2023Q1

REPORT INFORMATION
  Report Type: Spontaneous
  Country: CA (occurrence: CA)
  Receive Date: 20230301
  Receipt Date: 20230301
  Transmission Date: 20230417
  Serious: Yes (Other)
  Sender: FDA-Public Use
  Company Number: CA-UCBSA-2023010198

PATIENT
  Age: 59 Year
  Sex: Female

DRUGS (4)
  1. CIMZIA [Suspect]
     Active Substance: CERTOLIZUMAB PEGOL
     Indication: Rheumatoid arthritis
     Dosage: 400 MILLIGRAM
     Route: 058
  2. CIMZIA [Suspect]
     Active Substance: CERTOLIZUMAB PEGOL
     Dosage: 200 MILLIGRAM
     Route: 058
  3. COMIRNATY [Suspect]
     Active Substance: TOZINAMERAN
     Indication: COVID-19 immunisation
     Dosage: UNK
  4. BUDESONIDE\FORMOTEROL FUMARATE [Concomitant]
     Active Substance: BUDESONIDE\FORMOTEROL FUMARATE
     Indication: Asthma
     Dosage: UNK

REACTIONS (9)
  - Asthma [Unknown]
  - Blood pressure abnormal [Unknown]
  - Chronic obstructive pulmonary disease [Unknown]
  - Jaw disorder [Unknown]
  - Red blood cell count abnormal [Unknown]
  - Renal disorder [Unknown]
  - Rheumatoid arthritis [Unknown]
  - Vaccination complication [Unknown]
  - White blood cell count abnormal [Unknown]
